FAERS Safety Report 19742892 (Version 2)
Quarter: 2021Q3

REPORT INFORMATION
  Report Type: Spontaneous
  Country: US (occurrence: US)
  Receive Date: 20210824
  Receipt Date: 20210909
  Transmission Date: 20211014
  Serious: No
  Sender: FDA-Public Use
  Company Number: US-VERTEX PHARMACEUTICALS-2021-010418

PATIENT
  Age: 6 Year
  Sex: Female
  Weight: 21 kg

DRUGS (20)
  1. TRIKAFTA [Suspect]
     Active Substance: ELEXACAFTOR\IVACAFTOR\TEZACAFTOR
     Indication: CYSTIC FIBROSIS
     Dosage: 2 TABLETS (50MG ELEXA/25MG TEZA/37.5MG IVA) IN AM; 1 TABLET (75MG IVA) PM
     Route: 048
     Dates: start: 20210623
  2. LEVSIN [Concomitant]
     Active Substance: HYOSCYAMINE SULFATE
     Dosage: UNK, QD
  3. HYPERTONIC SALINE SOLUTION [Concomitant]
     Active Substance: SODIUM CHLORIDE
     Dosage: UNK, TID
  4. AZITHROMYCIN ANHYDROUS. [Concomitant]
     Active Substance: AZITHROMYCIN ANHYDROUS
     Dosage: UNK
  5. METRONIDAZOLE. [Concomitant]
     Active Substance: METRONIDAZOLE
     Dosage: 500 MG TABLET
     Route: 048
  6. VITAMIN D [ERGOCALCIFEROL] [Concomitant]
     Active Substance: ERGOCALCIFEROL
     Dosage: UNK, QD
  7. COLACE [Concomitant]
     Active Substance: DOCUSATE SODIUM
     Dosage: 100 MILLIGRAM, BID
     Route: 048
  8. LEVOFLOXACIN. [Concomitant]
     Active Substance: LEVOFLOXACIN
  9. ALBUTEROL HFA [Concomitant]
     Active Substance: ALBUTEROL SULFATE
     Dosage: UNK, BID
  10. LORATADINE. [Concomitant]
     Active Substance: LORATADINE
     Dosage: UNK, QD
  11. PULMOZYME [Concomitant]
     Active Substance: DORNASE ALFA
     Dosage: UNK, BID
  12. PREVACID [Concomitant]
     Active Substance: LANSOPRAZOLE
  13. TYLENOL [Concomitant]
     Active Substance: ACETAMINOPHEN
  14. PERTZYE [Concomitant]
     Active Substance: PANCRELIPASE AMYLASE\PANCRELIPASE LIPASE\PANCRELIPASE PROTEASE
     Dosage: 8000 UNITS CAPSULE
     Route: 048
  15. CULTURELLE [Concomitant]
     Active Substance: LACTOBACILLUS RHAMNOSUS
  16. CYPROHEPTADINE. [Concomitant]
     Active Substance: CYPROHEPTADINE
     Dosage: UNK, BID
  17. KITABIS PAK [Concomitant]
     Active Substance: TOBRAMYCIN
     Dosage: UNK, BID
  18. PROVENTIL HFA [SALBUTAMOL] [Concomitant]
  19. CETIRIZINE HCL [Concomitant]
     Active Substance: CETIRIZINE HYDROCHLORIDE
  20. NAPROXEN. [Concomitant]
     Active Substance: NAPROXEN
     Dosage: 250 MILLIGRAM TABLET
     Route: 048

REACTIONS (14)
  - Throat clearing [Unknown]
  - Weight increased [Unknown]
  - Abdominal pain [Recovering/Resolving]
  - Abdominal pain upper [Unknown]
  - Mood swings [Not Recovered/Not Resolved]
  - Constipation [Not Recovered/Not Resolved]
  - Aggression [Unknown]
  - Muscle spasms [Recovering/Resolving]
  - Bacterial disease carrier [Unknown]
  - Gastric disorder [Not Recovered/Not Resolved]
  - Insomnia [Not Recovered/Not Resolved]
  - Nightmare [Not Recovered/Not Resolved]
  - Moaning [Not Recovered/Not Resolved]
  - Mood altered [Recovering/Resolving]

NARRATIVE: CASE EVENT DATE: 2021
